FAERS Safety Report 21289264 (Version 1)
Quarter: 2022Q3

REPORT INFORMATION
  Report Type: Spontaneous
  Country: US (occurrence: US)
  Receive Date: 20220902
  Receipt Date: 20220902
  Transmission Date: 20221026
  Serious: No
  Sender: FDA-Public Use
  Company Number: US-ABBVIE-22K-163-4354399-00

PATIENT
  Sex: Male

DRUGS (2)
  1. IMBRUVICA [Suspect]
     Active Substance: IBRUTINIB
     Indication: Product used for unknown indication
     Dosage: TABLET SHOULD BE TAKEN WITH A GLASS OF WATER
     Route: 048
     Dates: start: 20141027, end: 2022
  2. IMBRUVICA [Suspect]
     Active Substance: IBRUTINIB
     Dosage: TABLET SHOULD BE TAKEN WITH A GLASS OF WATER
     Route: 048
     Dates: start: 2022

REACTIONS (2)
  - Food poisoning [Unknown]
  - COVID-19 [Unknown]

NARRATIVE: CASE EVENT DATE: 20210101
